FAERS Safety Report 8119563-8 (Version None)
Quarter: 2012Q1

REPORT INFORMATION
  Report Type: 
  Country: None (occurrence: None)
  Receive Date: 20120207
  Receipt Date: 20120202
  Transmission Date: 20120608
  Serious: Yes (Death, Hospitalization)
  Sender: FDA-Public Use
  Company Number: PHHY2012MX009502

PATIENT
  Sex: Female

DRUGS (3)
  1. ZOLEDRONOC ACID [Suspect]
     Indication: OSTEOPOROSIS
     Dosage: 5 MG/100 ML, ONCE A YEAR
     Route: 042
     Dates: start: 20100101
  2. LEVOTHYROXINE SODIUM [Concomitant]
     Indication: HYPOTHYROIDISM
     Dosage: 1 DF, 1 TABLET DAILY
  3. ZOLEDRONOC ACID [Suspect]
     Dosage: 5 MG/100 ML, ONCE A YEAR
     Route: 042
     Dates: start: 20110601

REACTIONS (4)
  - BRAIN NEOPLASM [None]
  - ASTROCYTOMA [None]
  - NEOPLASM PROGRESSION [None]
  - DYSLALIA [None]
